FAERS Safety Report 25321633 (Version 3)
Quarter: 2025Q3

REPORT INFORMATION
  Report Type: Spontaneous
  Country: EU (occurrence: EU)
  Receive Date: 20250516
  Receipt Date: 20250909
  Transmission Date: 20251020
  Serious: Yes (Life-Threatening, Hospitalization)
  Sender: ACCORD
  Company Number: None

PATIENT
  Age: 47 Year
  Sex: Female
  Weight: 90 kg

DRUGS (3)
  1. QUETIAPINE [Suspect]
     Active Substance: QUETIAPINE
     Indication: Aggression
     Dates: start: 20111201, end: 20240811
  2. ESLICARBAZEPINE ACETATE [Suspect]
     Active Substance: ESLICARBAZEPINE ACETATE
     Indication: Atypical benign partial epilepsy
     Dosage: STRENGTH: 800 MG PER DAY, 30 TABLETS
     Dates: start: 20120401, end: 20230930
  3. BRIVARACETAM [Concomitant]
     Active Substance: BRIVARACETAM
     Indication: Partial seizures

REACTIONS (1)
  - Sideroblastic anaemia [Recovered/Resolved]

NARRATIVE: CASE EVENT DATE: 20220407
